FAERS Safety Report 5463159-3 (Version None)
Quarter: 2007Q3

REPORT INFORMATION
  Report Type: 
  Country: None (occurrence: None)
  Receive Date: 20070920
  Receipt Date: 20070919
  Transmission Date: 20080115
  Serious: Yes (Hospitalization)
  Sender: FDA-Public Use
  Company Number: US-ALLERGAN-0707781US

PATIENT
  Sex: Male

DRUGS (1)
  1. BOTOX [Suspect]
     Indication: DYSTONIA
     Dosage: 235 UNITS, SINGLE
     Route: 030
     Dates: start: 20070718, end: 20070718

REACTIONS (9)
  - CHILLS [None]
  - COORDINATION ABNORMAL [None]
  - DRUG HYPERSENSITIVITY [None]
  - LEUKOENCEPHALOMYELITIS [None]
  - MENTAL STATUS CHANGES [None]
  - PYREXIA [None]
  - RASH GENERALISED [None]
  - SOMNOLENCE [None]
  - URINARY INCONTINENCE [None]
